FAERS Safety Report 5325783-8 (Version None)
Quarter: 2007Q2

REPORT INFORMATION
  Report Type: 
  Country: None (occurrence: None)
  Receive Date: 20070510
  Receipt Date: 20070426
  Transmission Date: 20071010
  Serious: Yes (Death)
  Sender: FDA-Public Use
  Company Number: 155855ISR

PATIENT
  Age: 68 Year
  Sex: Female

DRUGS (2)
  1. MIRTAZAPINE [Suspect]
     Indication: DEPRESSION
     Dosage: (30 MG), ORAL
     Route: 048
     Dates: start: 20051207
  2. DULOXETINE [Suspect]
     Dosage: ORAL
     Route: 048
     Dates: start: 20070118

REACTIONS (1)
  - SUBARACHNOID HAEMORRHAGE [None]
